FAERS Safety Report 15772620 (Version 1)
Quarter: 2018Q4

REPORT INFORMATION
  Report Type: Spontaneous
  Country: US (occurrence: US)
  Receive Date: 20181228
  Receipt Date: 20181228
  Transmission Date: 20190205
  Serious: No
  Sender: FDA-Public Use
  Company Number: US-SA-2018SA395079

PATIENT
  Age: 44 Year
  Sex: Female

DRUGS (1)
  1. PRALUENT [Suspect]
     Active Substance: ALIROCUMAB
     Dosage: UNK
     Route: 058
     Dates: start: 2018, end: 2018

REACTIONS (4)
  - Dry skin [Unknown]
  - Blister [Unknown]
  - Vision blurred [Unknown]
  - Influenza [Unknown]

NARRATIVE: CASE EVENT DATE: 2018
